FAERS Safety Report 5518705-8 (Version None)
Quarter: 2007Q4

REPORT INFORMATION
  Report Type: 
  Country: None (occurrence: None)
  Receive Date: 20071115
  Receipt Date: 20071112
  Transmission Date: 20080405
  Serious: Yes (Other)
  Sender: FDA-Public Use
  Company Number: NL-SHR-NL-2007-042932

PATIENT
  Sex: Female

DRUGS (8)
  1. ANGELIQ [Suspect]
     Route: 048
  2. ACETYLSALICYLIC ACID SRT [Concomitant]
  3. COZAAR [Concomitant]
  4. LESCOL [Concomitant]
  5. PROGRAFT [Concomitant]
  6. METOPROLOL TARTRATE [Concomitant]
  7. OMEPRAZOLE [Concomitant]
  8. PREDNISOLONE [Concomitant]

REACTIONS (2)
  - BLINDNESS UNILATERAL [None]
  - RETINAL VEIN THROMBOSIS [None]
